FAERS Safety Report 8026467-8 (Version None)
Quarter: 2012Q1

REPORT INFORMATION
  Report Type: 
  Country: None (occurrence: None)
  Receive Date: 20120105
  Receipt Date: 20120102
  Transmission Date: 20120608
  Serious: Yes (Death)
  Sender: FDA-Public Use
  Company Number: US-BAYER-2012-000912

PATIENT
  Age: 30 Year
  Sex: Male

DRUGS (2)
  1. ACETAMINOPHEN AND CODEINE PHOSPHATE [Suspect]
  2. INSULIN [Suspect]

REACTIONS (2)
  - TOXICITY TO VARIOUS AGENTS [None]
  - CARDIO-RESPIRATORY ARREST [None]
